FAERS Safety Report 5242151-8 (Version None)
Quarter: 2007Q1

REPORT INFORMATION
  Report Type: 
  Country: None (occurrence: None)
  Receive Date: 20070213
  Receipt Date: 20070207
  Transmission Date: 20070707
  Serious: Yes (Hospitalization)
  Sender: FDA-Public Use
  Company Number: TPA2007A00223

PATIENT
  Age: 45 Year
  Sex: Male
  Weight: 127.4608 kg

DRUGS (5)
  1. ACTOS [Suspect]
     Indication: DIABETES MELLITUS NON-INSULIN-DEPENDENT
     Dosage: 45 MG, 1 IN 1 D, PER ORAL
     Route: 048
     Dates: start: 20060101
  2. METFORMIN HCL [Concomitant]
  3. BYETTA (DRUG USED IN DIABETES) (INJECTION) [Concomitant]
  4. DIOVAN [Concomitant]
  5. ZIAC [Concomitant]

REACTIONS (2)
  - HERNIA [None]
  - MUSCLE SPASMS [None]
